FAERS Safety Report 16848043 (Version 1)
Quarter: 2019Q3

REPORT INFORMATION
  Report Type: Spontaneous
  Country: FR (occurrence: FR)
  Receive Date: 20190924
  Receipt Date: 20190924
  Transmission Date: 20191005
  Serious: Yes (Hospitalization)
  Sender: FDA-Public Use
  Company Number: FR-TEVA-2019-FR-1111796

PATIENT
  Age: 20 Year
  Sex: Male
  Weight: 95 kg

DRUGS (4)
  1. METHOTREXATE MYLAN [Suspect]
     Active Substance: METHOTREXATE SODIUM
     Indication: NEOPLASM MALIGNANT
     Dosage: 3 MG/M2
     Route: 042
     Dates: start: 20190805, end: 20190805
  2. ASPARGINASE ((BACTERIE/ESCHERICHIA COLI)) [Suspect]
     Active Substance: ASPARAGINASE
     Indication: NEOPLASM MALIGNANT
     Dosage: /M2; 10000 IU
     Route: 042
     Dates: start: 20190806, end: 20190806
  3. MERCAPTOPURINE. [Suspect]
     Active Substance: MERCAPTOPURINE
     Indication: NEOPLASM MALIGNANT
     Dosage: 60 MG/M2
     Route: 048
     Dates: start: 20190805, end: 20190811
  4. VINCRISTINE (SULFATE DE) [Suspect]
     Active Substance: VINCRISTINE SULFATE
     Indication: NEOPLASM MALIGNANT
     Dosage: 2 MG
     Route: 042
     Dates: start: 20190805, end: 20190805

REACTIONS (2)
  - Stomatitis [Recovered/Resolved]
  - Feeding disorder [Recovered/Resolved]

NARRATIVE: CASE EVENT DATE: 20190811
